FAERS Safety Report 13455214 (Version 1)
Quarter: 2017Q2

REPORT INFORMATION
  Report Type: Spontaneous
  Country: US (occurrence: US)
  Receive Date: 20170419
  Receipt Date: 20170419
  Transmission Date: 20170830
  Serious: Yes (Death, Other)
  Sender: FDA-Public Use
  Company Number: US-009507513-1704USA007269

PATIENT
  Age: 59 Year
  Sex: Male
  Weight: 99 kg

DRUGS (2)
  1. CYTOXAN [Suspect]
     Active Substance: CYCLOPHOSPHAMIDE
     Indication: PLASMA CELL MYELOMA
     Dosage: 505 MG, MONTHLY
     Route: 042
     Dates: start: 20161018, end: 20161222
  2. DECADRON [Suspect]
     Active Substance: DEXAMETHASONE
     Indication: PLASMA CELL MYELOMA
     Dosage: 20 MG, WEEKLY
     Route: 042
     Dates: start: 20160826, end: 20161222

REACTIONS (1)
  - Plasma cell myeloma [Fatal]
